FAERS Safety Report 21054947 (Version 2)
Quarter: 2022Q3

REPORT INFORMATION
  Report Type: Spontaneous
  Country: GB (occurrence: GB)
  Receive Date: 20220707
  Receipt Date: 20220711
  Transmission Date: 20221027
  Serious: No
  Sender: FDA-Public Use
  Company Number: GB-BIOGEN-2022BI01137536

PATIENT
  Sex: Female

DRUGS (1)
  1. PLEGRIDY [Suspect]
     Active Substance: PEGINTERFERON BETA-1A
     Indication: Multiple sclerosis
     Dosage: 125MICROGRAMS/0.5ML
     Route: 050

REACTIONS (3)
  - Feeling hot [Unknown]
  - Headache [Unknown]
  - Hangover [Unknown]
